FAERS Safety Report 21034087 (Version 1)
Quarter: 2022Q2

REPORT INFORMATION
  Report Type: Spontaneous
  Country: US (occurrence: None)
  Receive Date: 20220630
  Receipt Date: 20220630
  Transmission Date: 20220720
  Serious: Yes (Hospitalization)
  Sender: FDA-Public Use
  Company Number: None

PATIENT
  Age: 53 Year
  Sex: Male

DRUGS (3)
  1. MYCOPHENOLIC ACID [Suspect]
     Active Substance: MYCOPHENOLIC ACID
  2. TACROLIMUS [Concomitant]
  3. TACROLIMUS A [Concomitant]

REACTIONS (1)
  - Dehydration [None]

NARRATIVE: CASE EVENT DATE: 20220624
